FAERS Safety Report 6856217-X (Version None)
Quarter: 2010Q2

REPORT INFORMATION
  Report Type: 
  Country: None (occurrence: None)
  Receive Date: 20100629
  Receipt Date: 20100521
  Transmission Date: 20101027
  Serious: No
  Sender: FDA-Public Use
  Company Number: US-WYE-H15303010

PATIENT
  Age: 37 Year
  Sex: Male
  Weight: 90.8 kg

DRUGS (2)
  1. PRISTIQ [Suspect]
     Indication: DEPRESSION
     Dosage: 50 MG 1X PER 1 DAY, ORAL; 50 MG 1X PER 1 DAY, ORAL
     Route: 048
     Dates: end: 20100501
  2. PRISTIQ [Suspect]
     Indication: DEPRESSION
     Dosage: 50 MG 1X PER 1 DAY, ORAL; 50 MG 1X PER 1 DAY, ORAL
     Route: 048
     Dates: start: 20100501, end: 20100518

REACTIONS (5)
  - BLISTER [None]
  - COELIAC DISEASE [None]
  - CONDITION AGGRAVATED [None]
  - RASH ERYTHEMATOUS [None]
  - RASH PRURITIC [None]
